FAERS Safety Report 5873872-1 (Version None)
Quarter: 2008Q3

REPORT INFORMATION
  Report Type: 
  Country: None (occurrence: None)
  Receive Date: 20080829
  Receipt Date: 20080818
  Transmission Date: 20090109
  Serious: Yes (Hospitalization)
  Sender: FDA-Public Use
  Company Number: 2008S1015211

PATIENT
  Age: 64 Year
  Sex: Male

DRUGS (18)
  1. BISOPROLOL FUMARATE [Suspect]
     Indication: HYPERTENSION
     Dosage: 2.5 MG DAILY ORAL
     Route: 048
     Dates: end: 20080717
  2. CEPHALEXIN [Suspect]
     Indication: URINARY TRACT INFECTION
     Dosage: 500 MG; 3 TIMES A DAY; ORAL
     Route: 048
     Dates: start: 20080707, end: 20080714
  3. ALPHOSYL HC [Concomitant]
  4. ASPIRIN [Concomitant]
  5. BETAMETHASONE [Concomitant]
  6. BISPROLOL [Concomitant]
  7. CALCIPOTRIENE [Concomitant]
  8. CETIRIZINE HCL [Concomitant]
  9. DIPROBASE /01007601/ [Concomitant]
  10. HYDROCORTISONE [Concomitant]
  11. ISPAGHULA [Concomitant]
  12. MACROGOL [Concomitant]
  13. MANEVAC [Concomitant]
  14. MICONAZOLE [Concomitant]
  15. PRAGMATAR [Concomitant]
  16. SIMVASTATIN [Concomitant]
  17. TOLTERODINE TARTRATE [Concomitant]
  18. ZOPICLONE [Concomitant]

REACTIONS (2)
  - LOSS OF CONSCIOUSNESS [None]
  - RASH PRURITIC [None]
